FAERS Safety Report 7176648-0 (Version None)
Quarter: 2010Q4

REPORT INFORMATION
  Report Type: 
  Country: None (occurrence: None)
  Receive Date: 20101216
  Receipt Date: 20101216
  Transmission Date: 20110411
  Serious: Yes (Life-Threatening, Other)
  Sender: FDA-Public Use
  Company Number: None

PATIENT
  Age: 31 Year
  Sex: Female
  Weight: 49.8957 kg

DRUGS (4)
  1. RISPERDAL [Suspect]
     Indication: ANXIETY
     Dosage: 1 PILL TWICE A DAY PO
     Route: 048
     Dates: start: 20000101, end: 20010101
  2. RISPERDAL [Suspect]
     Indication: DEPRESSION
     Dosage: 1 PILL TWICE A DAY PO
     Route: 048
     Dates: start: 20000101, end: 20010101
  3. ZOLOFT [Suspect]
     Indication: ANXIETY
     Dosage: 1 PILL TWICE A DAY OROPHARINGEAL
     Route: 049
     Dates: start: 20000101, end: 20010101
  4. ZOLOFT [Suspect]
     Indication: DEPRESSION
     Dosage: 1 PILL TWICE A DAY OROPHARINGEAL
     Route: 049
     Dates: start: 20000101, end: 20010101

REACTIONS (7)
  - AGGRESSION [None]
  - CONVERSION DISORDER [None]
  - FEELING ABNORMAL [None]
  - PARANOIA [None]
  - PHOTOPHOBIA [None]
  - SUICIDAL BEHAVIOUR [None]
  - SUICIDAL IDEATION [None]
